FAERS Safety Report 5900937-8 (Version None)
Quarter: 2008Q3

REPORT INFORMATION
  Report Type: 
  Country: None (occurrence: None)
  Receive Date: 20080924
  Receipt Date: 20080915
  Transmission Date: 20090109
  Serious: Yes (Death, Life-Threatening, Hospitalization, Disabling, Other)
  Sender: FDA-Public Use
  Company Number: GXKR2008GB08827

PATIENT
  Age: 81 Year
  Sex: Male
  Weight: 56.2 kg

DRUGS (8)
  1. AMIODARONE HCL [Suspect]
     Indication: VENTRICULAR TACHYCARDIA
     Dosage: 200 MG, QD, ORAL
     Route: 048
     Dates: start: 20070820, end: 20071005
  2. ACETYLSALICYLIC ACID SRT [Concomitant]
  3. ATORVASTATIN CALCIUM [Concomitant]
  4. FUROSEMIDE [Concomitant]
  5. ISOSORBIDE MONONITRATE [Concomitant]
  6. LANZOPRAZOL (LANSOPRAZOLE) [Concomitant]
  7. RAMIPRIL [Concomitant]
  8. SPIRONOLACTONE [Concomitant]

REACTIONS (7)
  - ALVEOLITIS [None]
  - BALANCE DISORDER [None]
  - CARDIAC FAILURE [None]
  - DYSPNOEA [None]
  - ILL-DEFINED DISORDER [None]
  - PNEUMONIA [None]
  - TREMOR [None]
